FAERS Safety Report 22541934 (Version 2)
Quarter: 2023Q2

REPORT INFORMATION
  Report Type: Spontaneous
  Country: CN (occurrence: CN)
  Receive Date: 20230609
  Receipt Date: 20230614
  Transmission Date: 20230722
  Serious: Yes (Hospitalization)
  Sender: FDA-Public Use
  Company Number: CN-ELI_LILLY_AND_COMPANY-CN202306002223

PATIENT
  Age: 69 Year
  Sex: Male
  Weight: 80 kg

DRUGS (1)
  1. OLUMIANT [Suspect]
     Active Substance: BARICITINIB
     Indication: Pneumonia
     Dosage: 2 MG, DAILY
     Route: 048
     Dates: start: 20230507, end: 20230521

REACTIONS (2)
  - Pneumonia staphylococcal [Unknown]
  - Off label use [Unknown]

NARRATIVE: CASE EVENT DATE: 20230521
